FAERS Safety Report 6781787-X (Version None)
Quarter: 2010Q2

REPORT INFORMATION
  Report Type: 
  Country: None (occurrence: None)
  Receive Date: 20100621
  Receipt Date: 20100610
  Transmission Date: 20101027
  Serious: Yes (Other)
  Sender: FDA-Public Use
  Company Number: JP-JNJFOC-20100604701

PATIENT
  Sex: Female
  Weight: 53 kg

DRUGS (14)
  1. DOXIL [Suspect]
     Indication: OVARIAN CANCER RECURRENT
     Dosage: CYCLE 6
     Route: 042
  2. DOXIL [Suspect]
     Dosage: CYCLE 1
     Route: 042
  3. DOXIL [Suspect]
     Dosage: CYCLE 2
     Route: 042
  4. DOXIL [Suspect]
     Dosage: CYCLE 3
     Route: 042
  5. DOXIL [Suspect]
     Dosage: CYCLE 4
     Route: 042
  6. DOXIL [Suspect]
     Dosage: CYCLE 5
     Route: 042
  7. DECADRON [Concomitant]
     Indication: DRUG USE FOR UNKNOWN INDICATION
     Route: 042
  8. DECADRON [Concomitant]
     Route: 042
  9. ZANTAC [Concomitant]
     Indication: PROPHYLAXIS
     Route: 042
  10. GLUCOSE [Concomitant]
     Indication: DRUG USE FOR UNKNOWN INDICATION
     Route: 042
  11. GOSHA-JINKI-GAN [Concomitant]
     Indication: DRUG USE FOR UNKNOWN INDICATION
     Route: 048
  12. MAGLAX [Concomitant]
     Indication: DRUG USE FOR UNKNOWN INDICATION
     Route: 048
  13. PYDOXAL [Concomitant]
     Indication: DRUG USE FOR UNKNOWN INDICATION
     Route: 048
  14. EXCELASE [Concomitant]
     Indication: DYSPEPSIA
     Route: 048

REACTIONS (1)
  - NEUROPATHY PERIPHERAL [None]
